FAERS Safety Report 11854940 (Version 1)
Quarter: 2015Q4

REPORT INFORMATION
  Report Type: Spontaneous
  Country: US (occurrence: US)
  Receive Date: 20151221
  Receipt Date: 20151221
  Transmission Date: 20160305
  Serious: No
  Sender: FDA-Public Use
  Company Number: US-BAYER-2015-492420

PATIENT
  Age: 75 Year
  Sex: Female
  Weight: 68.93 kg

DRUGS (2)
  1. ANASPAZ [Concomitant]
     Active Substance: HYOSCYAMINE SULFATE
     Dosage: UNK UNK, PRN
     Route: 048
  2. MIRALAX [Suspect]
     Active Substance: POLYETHYLENE GLYCOL 3350
     Indication: CONSTIPATION
     Dosage: 1 DF, PRN
     Route: 048
     Dates: start: 201502

REACTIONS (6)
  - Rash [Not Recovered/Not Resolved]
  - Off label use [None]
  - Product use issue [None]
  - Pruritus generalised [Not Recovered/Not Resolved]
  - Nausea [None]
  - Pruritus [Not Recovered/Not Resolved]

NARRATIVE: CASE EVENT DATE: 2015
